FAERS Safety Report 5874477-9 (Version None)
Quarter: 2008Q3

REPORT INFORMATION
  Report Type: 
  Country: None (occurrence: None)
  Receive Date: 20080909
  Receipt Date: 20080828
  Transmission Date: 20090109
  Serious: Yes (Other)
  Sender: FDA-Public Use
  Company Number: BR-RANBAXY-2008R5-17674

PATIENT

DRUGS (1)
  1. CEFUROXIME AXETIL [Suspect]
     Indication: ERYSIPELAS
     Dosage: 500 MG, UNK
     Route: 048
     Dates: start: 20080828, end: 20080828

REACTIONS (5)
  - ERYTHEMA [None]
  - MALAISE [None]
  - OEDEMA PERIPHERAL [None]
  - PRURITUS [None]
  - SWELLING FACE [None]
